FAERS Safety Report 6608697-2 (Version None)
Quarter: 2010Q1

REPORT INFORMATION
  Report Type: 
  Country: None (occurrence: None)
  Receive Date: 20100224
  Receipt Date: 20100224
  Transmission Date: 20100710
  Serious: No
  Sender: FDA-Public Use
  Company Number: None

PATIENT
  Age: 25 Year
  Sex: Female
  Weight: 56.6996 kg

DRUGS (8)
  1. ATENOLOL [Suspect]
     Dosage: 25MG PO
     Route: 048
  2. HALOPERIDOL [Suspect]
     Dosage: 75MG 3 DAYS IM
     Route: 030
  3. CLOZAPINE [Concomitant]
  4. DOCUSATE [Concomitant]
  5. TETRACYCLINE [Concomitant]
  6. LORAZEPAM [Concomitant]
  7. BENTROPINE [Concomitant]
  8. LITHIUM [Concomitant]

REACTIONS (2)
  - CATATONIA [None]
  - MENTAL STATUS CHANGES [None]
